FAERS Safety Report 7113158-0 (Version None)
Quarter: 2010Q4

REPORT INFORMATION
  Report Type: 
  Country: None (occurrence: None)
  Receive Date: 20101119
  Receipt Date: 20090226
  Transmission Date: 20110411
  Serious: Yes (Other)
  Sender: FDA-Public Use
  Company Number: GB-AMGEN-UK331062

PATIENT

DRUGS (7)
  1. NEUPOGEN [Suspect]
     Indication: CHEMOTHERAPY
     Dosage: 300 A?G, QD
     Route: 058
     Dates: start: 20090123, end: 20090125
  2. FLUOROURACIL [Concomitant]
     Dosage: UNK UNK, UNK
     Route: 065
  3. CYCLOPHOSPHAMIDE [Concomitant]
     Dosage: UNK UNK, UNK
     Route: 065
  4. EPIRUBICIN [Concomitant]
     Dosage: UNK UNK, UNK
     Route: 065
  5. APREPITANT [Concomitant]
     Dosage: UNK UNK, UNK
     Route: 065
  6. IBUPROFEN [Concomitant]
     Dosage: UNK UNK, UNK
     Route: 065
  7. PANADEINE CO [Concomitant]
     Dosage: UNK UNK, UNK
     Route: 065

REACTIONS (6)
  - ANAPHYLACTIC REACTION [None]
  - DIARRHOEA [None]
  - INJECTION SITE ERYTHEMA [None]
  - INJECTION SITE RASH [None]
  - SWELLING FACE [None]
  - SWOLLEN TONGUE [None]
